FAERS Safety Report 7350569-2 (Version None)
Quarter: 2011Q1

REPORT INFORMATION
  Report Type: 
  Country: None (occurrence: None)
  Receive Date: 20110222
  Receipt Date: 20101115
  Transmission Date: 20110831
  Serious: No
  Sender: FDA-Public Use
  Company Number: 022062

PATIENT
  Sex: Female

DRUGS (3)
  1. KLONOPIN [Concomitant]
  2. LACOSAMIDE [Suspect]
     Indication: CONVULSION
     Dosage: (50 MG BID ORAL)
     Route: 048
     Dates: start: 20101001
  3. SYNTHROID [Concomitant]

REACTIONS (1)
  - CONTUSION [None]
